FAERS Safety Report 9373454 (Version 3)
Quarter: 2013Q3

REPORT INFORMATION
  Report Type: Report from Study
  Country: DE (occurrence: DE)
  Receive Date: 20130627
  Receipt Date: 20130709
  Transmission Date: 20140515
  Serious: Yes (Hospitalization)
  Sender: FDA-Public Use
  Company Number: DE-ABBOTT-13P-062-1108974-00

PATIENT
  Age: 54 Year
  Sex: Male
  Weight: 92 kg

DRUGS (2)
  1. HUMIRA [Suspect]
     Indication: PSORIASIS
     Route: 058
     Dates: start: 20120301, end: 20130420
  2. METHOTREXATE [Concomitant]
     Indication: PSORIASIS
     Dates: start: 20120301

REACTIONS (6)
  - Foot deformity [Recovered/Resolved]
  - Foot deformity [Recovered/Resolved]
  - Foot deformity [Recovered/Resolved]
  - Joint dislocation [Recovered/Resolved]
  - Pain [Recovered/Resolved]
  - Inflammation [Unknown]
